FAERS Safety Report 9551013 (Version 1)
Quarter: 2013Q3

REPORT INFORMATION
  Report Type: Report from Study
  Country: US (occurrence: US)
  Receive Date: 20130925
  Receipt Date: 20130925
  Transmission Date: 20140515
  Serious: Yes (Death, Hospitalization)
  Sender: FDA-Public Use
  Company Number: US-ROCHE-1279503

PATIENT
  Sex: Male

DRUGS (3)
  1. BEVACIZUMAB [Suspect]
     Indication: COLORECTAL CANCER
     Dosage: AT DOSE LEVEL -2, -1, 0, 1, 2, 3
     Route: 042
  2. IMATINIB [Suspect]
     Indication: COLORECTAL CANCER
     Route: 048
  3. CYCLOPHOSPHAMIDE [Suspect]
     Indication: COLORECTAL CANCER
     Route: 048

REACTIONS (2)
  - Death [Fatal]
  - Abdominal pain [Unknown]
